FAERS Safety Report 9340350 (Version 1)
Quarter: 2013Q2

REPORT INFORMATION
  Report Type: Spontaneous
  Country: DE (occurrence: None)
  Receive Date: 20130605
  Receipt Date: 20130605
  Transmission Date: 20140414
  Serious: Yes (Other)
  Sender: FDA-Public Use
  Company Number: AUR-APL-2013-03818

PATIENT
  Age: 73 Year
  Sex: Female

DRUGS (5)
  1. MIRTAZAPINE (MIRTAZAPINE) [Suspect]
     Indication: DEPRESSION
     Route: 048
     Dates: start: 20121115, end: 20130118
  2. CLOMIPRAMINE (CLOMPRAMINE) [Concomitant]
  3. JURNISTA (HYDROMORPHONE HYDROCHLORIDE) [Concomitant]
  4. PROMETHAZINE (PROMETHAZINE) [Concomitant]
  5. IBUPROFEN (IBUPROFEN) [Concomitant]

REACTIONS (2)
  - Haemorrhage subcutaneous [None]
  - Haemorrhage [None]
